FAERS Safety Report 16350178 (Version 1)
Quarter: 2019Q2

REPORT INFORMATION
  Report Type: Spontaneous
  Country: LT (occurrence: LT)
  Receive Date: 20190523
  Receipt Date: 20190523
  Transmission Date: 20190711
  Serious: Yes (Other)
  Sender: FDA-Public Use
  Company Number: LT-BAXTER-2019BAX009945

PATIENT
  Age: 51 Year
  Sex: Female
  Weight: 98 kg

DRUGS (23)
  1. CARBOPLATIN. [Suspect]
     Active Substance: CARBOPLATIN
     Indication: BRCA1 GENE MUTATION
     Dosage: 6 CYCLES, STABILE DISEASE
     Route: 065
     Dates: start: 20100222, end: 20100601
  2. PACLITAXEL. [Suspect]
     Active Substance: PACLITAXEL
     Indication: BRCA1 GENE MUTATION
     Dosage: 6 CYCLES, STABILE DISEASE
     Route: 065
     Dates: start: 20100222, end: 20100601
  3. GEMCITABINE [Suspect]
     Active Substance: GEMCITABINE\GEMCITABINE HYDROCHLORIDE
     Indication: BRCA1 GENE MUTATION
     Dosage: 6 CYCLES
     Route: 065
     Dates: start: 20170220, end: 20170818
  4. ANASTROZOLE. [Suspect]
     Active Substance: ANASTROZOLE
     Indication: OVARIAN EPITHELIAL CANCER STAGE I
  5. LORAZEPAM. [Concomitant]
     Active Substance: LORAZEPAM
     Indication: PRODUCT USED FOR UNKNOWN INDICATION
     Route: 065
  6. DEXAMETHASONE. [Concomitant]
     Active Substance: DEXAMETHASONE
     Indication: PRODUCT USED FOR UNKNOWN INDICATION
     Route: 065
  7. ENDOXAN 1 G MILTELIAI INJEKCINIAM TIRPALUI [Suspect]
     Active Substance: CYCLOPHOSPHAMIDE
     Indication: BRCA1 GENE MUTATION
     Dosage: 6 CYCLES
     Route: 065
     Dates: start: 20090611, end: 20091012
  8. CARBOPLATIN. [Suspect]
     Active Substance: CARBOPLATIN
     Dosage: 6 CYCLES
     Route: 065
     Dates: start: 20170220, end: 20170818
  9. PLD [Suspect]
     Active Substance: DOXORUBICIN HYDROCHLORIDE
     Indication: BRCA1 GENE MUTATION
     Dosage: 6 CYCLES
     Route: 065
     Dates: start: 20180223, end: 20181009
  10. CISPLATIN. [Suspect]
     Active Substance: CISPLATIN
     Indication: OVARIAN EPITHELIAL CANCER STAGE I
  11. FENTANYL. [Concomitant]
     Active Substance: FENTANYL
     Indication: PRODUCT USED FOR UNKNOWN INDICATION
     Route: 065
  12. CISPLATIN. [Suspect]
     Active Substance: CISPLATIN
     Indication: BRCA1 GENE MUTATION
     Dosage: 6 CYCLES
     Route: 065
     Dates: start: 20090611, end: 20091012
  13. CARBOPLATIN. [Suspect]
     Active Substance: CARBOPLATIN
     Dosage: 2 CYCLES
     Route: 065
     Dates: start: 201110
  14. CARBOPLATIN. [Suspect]
     Active Substance: CARBOPLATIN
     Dosage: 6 CYCLES
     Route: 065
     Dates: start: 20180223, end: 20181009
  15. PACLITAXEL. [Suspect]
     Active Substance: PACLITAXEL
     Indication: OVARIAN EPITHELIAL CANCER STAGE I
     Dosage: 2 CYCLES
     Route: 065
     Dates: start: 20100709, end: 20100730
  16. PLD [Suspect]
     Active Substance: DOXORUBICIN HYDROCHLORIDE
     Indication: OVARIAN EPITHELIAL CANCER STAGE I
  17. ANASTROZOLE. [Suspect]
     Active Substance: ANASTROZOLE
     Indication: BRCA1 GENE MUTATION
     Route: 065
     Dates: start: 20181010, end: 20190222
  18. GABAPENTIN. [Concomitant]
     Active Substance: GABAPENTIN
     Indication: PRODUCT USED FOR UNKNOWN INDICATION
     Route: 065
  19. ENDOXAN 1 G MILTELIAI INJEKCINIAM TIRPALUI [Suspect]
     Active Substance: CYCLOPHOSPHAMIDE
     Indication: OVARIAN EPITHELIAL CANCER STAGE I
     Dosage: 2 CYCLES
     Route: 065
     Dates: start: 201110
  20. CARBOPLATIN. [Suspect]
     Active Substance: CARBOPLATIN
     Indication: OVARIAN EPITHELIAL CANCER STAGE I
     Dosage: 2 CYCLES
     Route: 065
     Dates: start: 20100709, end: 20100730
  21. CARBOPLATIN. [Suspect]
     Active Substance: CARBOPLATIN
     Dosage: 6 CYCLES
     Route: 065
     Dates: start: 20131120, end: 20140409
  22. GEMCITABINE [Suspect]
     Active Substance: GEMCITABINE\GEMCITABINE HYDROCHLORIDE
     Indication: OVARIAN EPITHELIAL CANCER STAGE I
  23. ISOPTIN [Concomitant]
     Active Substance: VERAPAMIL HYDROCHLORIDE
     Indication: PRODUCT USED FOR UNKNOWN INDICATION
     Route: 065

REACTIONS (8)
  - Thrombocytopenia [Unknown]
  - Metastases to lymph nodes [Unknown]
  - Metastases to central nervous system [Unknown]
  - Anaemia [Unknown]
  - Metastases to retroperitoneum [Unknown]
  - Neutropenia [Unknown]
  - Metastases to lymph nodes [Unknown]
  - Bone marrow failure [Unknown]

NARRATIVE: CASE EVENT DATE: 201110
